FAERS Safety Report 7878510-4 (Version None)
Quarter: 2011Q4

REPORT INFORMATION
  Report Type: 
  Country: None (occurrence: None)
  Receive Date: 20111101
  Receipt Date: 20111025
  Transmission Date: 20120403
  Serious: Yes (Other)
  Sender: FDA-Public Use
  Company Number: US-BAYER-2011-096367

PATIENT
  Age: 77 Year
  Sex: Male

DRUGS (3)
  1. NEXAVAR [Suspect]
     Dosage: 400 MG, BID
     Dates: start: 20111001
  2. COUMADIN [Concomitant]
     Dosage: UNK
  3. NEXAVAR [Suspect]
     Indication: RENAL CELL CARCINOMA
     Dosage: 200 MG, BID
     Dates: start: 20110901, end: 20111001

REACTIONS (4)
  - FREQUENT BOWEL MOVEMENTS [None]
  - FATIGUE [None]
  - APHAGIA [None]
  - GLOSSODYNIA [None]
